FAERS Safety Report 13504049 (Version 1)
Quarter: 2017Q2

REPORT INFORMATION
  Report Type: Spontaneous
  Country: FR (occurrence: FR)
  Receive Date: 20170502
  Receipt Date: 20170502
  Transmission Date: 20170830
  Serious: Yes (Life-Threatening)
  Sender: FDA-Public Use
  Company Number: FR-JNJFOC-20170430431

PATIENT
  Age: 87 Year
  Sex: Female

DRUGS (6)
  1. TEMERIT [Concomitant]
     Active Substance: NEBIVOLOL
     Route: 048
  2. SPIRONOLACTONE. [Concomitant]
     Active Substance: SPIRONOLACTONE
     Route: 048
  3. VALSARTAN. [Concomitant]
     Active Substance: VALSARTAN
     Route: 048
  4. LASILIX [Concomitant]
     Active Substance: FUROSEMIDE
     Route: 048
  5. SPECIAFOLDINE [Concomitant]
     Active Substance: FOLIC ACID
     Route: 048
  6. XARELTO [Suspect]
     Active Substance: RIVAROXABAN
     Indication: ATRIAL FIBRILLATION
     Route: 048
     Dates: end: 20170402

REACTIONS (2)
  - Ischaemic stroke [Not Recovered/Not Resolved]
  - Drug ineffective [Not Recovered/Not Resolved]

NARRATIVE: CASE EVENT DATE: 20170402
